FAERS Safety Report 16735042 (Version 4)
Quarter: 2019Q4

REPORT INFORMATION
  Report Type: Spontaneous
  Country: AU (occurrence: AU)
  Receive Date: 20190823
  Receipt Date: 20191029
  Transmission Date: 20200122
  Serious: Yes (Hospitalization, Other)
  Sender: FDA-Public Use
  Company Number: AU-NOVOPROD-679573

PATIENT
  Age: 53 Year
  Sex: Male
  Weight: 122 kg

DRUGS (1)
  1. SAXENDA [Suspect]
     Active Substance: LIRAGLUTIDE
     Indication: OBESITY
     Dosage: 0.60 MG
     Route: 065
     Dates: start: 20190811, end: 20190811

REACTIONS (4)
  - Myocardial strain [Not Recovered/Not Resolved]
  - Dehydration [Not Recovered/Not Resolved]
  - Pancreatitis acute [Not Recovered/Not Resolved]
  - Acute kidney injury [Recovered/Resolved with Sequelae]

NARRATIVE: CASE EVENT DATE: 20190811
